FAERS Safety Report 8513832-5 (Version None)
Quarter: 2012Q3

REPORT INFORMATION
  Report Type: 
  Country: None (occurrence: None)
  Receive Date: 20120717
  Receipt Date: 20120711
  Transmission Date: 20120928
  Serious: Yes (Hospitalization, Other)
  Sender: FDA-Public Use
  Company Number: FR-GENZYME-FLUD-1001514

PATIENT
  Sex: Male

DRUGS (13)
  1. ESCITALOPRAM [Suspect]
     Indication: PRODUCT USED FOR UNKNOWN INDICATION
     Dosage: 10 MG, QD, 1 PILL
     Route: 065
  2. VALACYCLOVIR HYDROCHLORIDE [Suspect]
     Indication: PRODUCT USED FOR UNKNOWN INDICATION
     Dosage: 500 MG, UNK
     Route: 065
  3. CYCLOPHOSPHAMIDE [Suspect]
     Dosage: 400 MG, QD, CYCLE 2
     Route: 065
     Dates: start: 20120602, end: 20120604
  4. FLUDARA [Suspect]
     Dosage: 80 MG, QD, CYCLE 2
     Route: 065
     Dates: start: 20120602, end: 20120604
  5. BACTRIM [Suspect]
     Indication: PRODUCT USED FOR UNKNOWN INDICATION
     Dosage: UNK
     Route: 065
  6. FLUDARA [Suspect]
     Indication: CHRONIC LYMPHOCYTIC LEUKAEMIA
     Dosage: 80 MG, UNK, CYCLE 1
     Route: 065
     Dates: start: 20120428, end: 20120430
  7. MABTHERA [Suspect]
     Indication: CHRONIC LYMPHOCYTIC LEUKAEMIA
     Dosage: 755 MG, ONCE, CYCLE 1
     Route: 065
     Dates: start: 20120427, end: 20120427
  8. CYCLOPHOSPHAMIDE [Suspect]
     Indication: CHRONIC LYMPHOCYTIC LEUKAEMIA
     Dosage: 500 MG, QD, CYCLE 1
     Route: 065
     Dates: start: 20120428, end: 20120430
  9. DEDROGYL [Suspect]
     Indication: PRODUCT USED FOR UNKNOWN INDICATION
     Dosage: 15 MG/100ML (3 DRPS/D)
     Route: 065
  10. MAG 2 [Suspect]
     Indication: PRODUCT USED FOR UNKNOWN INDICATION
     Dosage: UNK
     Route: 065
  11. MABTHERA [Suspect]
     Dosage: 1000 MG, ONCE, CYCLE 2
     Route: 065
     Dates: start: 20120601, end: 20120601
  12. PHOSPHONEUROS [Suspect]
     Indication: PRODUCT USED FOR UNKNOWN INDICATION
     Dosage: UNK
     Route: 065
  13. DIFRAREL [Suspect]
     Indication: PRODUCT USED FOR UNKNOWN INDICATION
     Dosage: 100 MG, UNK
     Route: 065

REACTIONS (15)
  - RASH [None]
  - LEUKOPENIA [None]
  - HYPOTENSION [None]
  - DIARRHOEA [None]
  - ATRIAL FIBRILLATION [None]
  - PYREXIA [None]
  - HEADACHE [None]
  - VERTIGO [None]
  - VOMITING [None]
  - BLOOD CREATININE INCREASED [None]
  - CARDIAC MURMUR [None]
  - OEDEMA PERIPHERAL [None]
  - NEUTROPENIA [None]
  - MUSCLE SPASMS [None]
  - ALANINE AMINOTRANSFERASE INCREASED [None]
